FAERS Safety Report 6486826-1 (Version None)
Quarter: 2009Q4

REPORT INFORMATION
  Report Type: 
  Country: None (occurrence: None)
  Receive Date: 20091210
  Receipt Date: 20091202
  Transmission Date: 20100525
  Serious: Yes (Life-Threatening, Other)
  Sender: FDA-Public Use
  Company Number: PHHO2009CH14930

PATIENT

DRUGS (4)
  1. CGS 20267 T30748+TAB [Suspect]
     Indication: BREAST CANCER
     Dosage: 2.5 MG, QD
     Route: 048
     Dates: start: 20091120, end: 20091120
  2. ENALAPRIL MALEATE [Concomitant]
     Indication: HYPERTENSION
  3. METFORMIN HCL [Concomitant]
  4. GLICLAZIDE [Concomitant]

REACTIONS (3)
  - ANGIOEDEMA [None]
  - HYPERSENSITIVITY [None]
  - LIP SWELLING [None]
